FAERS Safety Report 23220712 (Version 1)
Quarter: 2023Q4

REPORT INFORMATION
  Report Type: Report from Study
  Country: US (occurrence: US)
  Receive Date: 20231123
  Receipt Date: 20231123
  Transmission Date: 20240110
  Serious: No
  Sender: FDA-Public Use
  Company Number: US-002147023-NVSC2023US248882

PATIENT
  Age: 39 Year
  Sex: Male

DRUGS (1)
  1. KESIMPTA [Suspect]
     Active Substance: OFATUMUMAB
     Indication: Product used for unknown indication
     Dosage: UNK
     Route: 065

REACTIONS (11)
  - Pyrexia [Unknown]
  - Chills [Unknown]
  - Acne [Unknown]
  - Fatigue [Unknown]
  - Feeling cold [Unknown]
  - Feeling hot [Unknown]
  - Hyperhidrosis [Unknown]
  - Peripheral coldness [Unknown]
  - Pain [Unknown]
  - Insomnia [Unknown]
  - Eye disorder [Unknown]

NARRATIVE: CASE EVENT DATE: 20231117
